FAERS Safety Report 17997112 (Version 1)
Quarter: 2020Q3

REPORT INFORMATION
  Report Type: Spontaneous
  Country: BR (occurrence: BR)
  Receive Date: 20200708
  Receipt Date: 20200708
  Transmission Date: 20201103
  Serious: Yes (Other)
  Sender: FDA-Public Use
  Company Number: NVSC2020BR192894

PATIENT
  Sex: Female

DRUGS (2)
  1. DUO TRAVATAN [Suspect]
     Active Substance: TIMOLOL MALEATE\TRAVOPROST
     Indication: GLAUCOMA
     Dosage: UNK
     Route: 065
  2. TRAVATAN [Suspect]
     Active Substance: TRAVOPROST
     Indication: GLAUCOMA
     Dosage: UNK
     Route: 065

REACTIONS (5)
  - Sjogren^s syndrome [Unknown]
  - Rheumatoid arthritis [Unknown]
  - Photophobia [Unknown]
  - Eye irritation [Unknown]
  - Dry eye [Unknown]
